FAERS Safety Report 7205677-3 (Version None)
Quarter: 2010Q4

REPORT INFORMATION
  Report Type: 
  Country: None (occurrence: None)
  Receive Date: 20101231
  Receipt Date: 20101228
  Transmission Date: 20110411
  Serious: Yes (Hospitalization)
  Sender: FDA-Public Use
  Company Number: FR-PFIZER INC-2010179964

PATIENT
  Age: 76 Year
  Sex: Female
  Weight: 50 kg

DRUGS (5)
  1. SUTENT [Suspect]
     Indication: RENAL CELL CARCINOMA
     Dosage: 50 MG, 1X/DAY
     Route: 048
     Dates: start: 20101011, end: 20101107
  2. ACUILIX [Suspect]
     Dosage: UNK
     Route: 048
     Dates: end: 20101109
  3. KARDEGIC [Suspect]
     Indication: THROMBOCYTOSIS
     Dosage: 75 MG, 1X/DAY
     Route: 048
     Dates: start: 20101001, end: 20101109
  4. CRESTOR [Concomitant]
  5. LASIX [Concomitant]

REACTIONS (5)
  - EPISTAXIS [None]
  - HAEMORRHAGIC DIATHESIS [None]
  - RENAL FAILURE ACUTE [None]
  - THROMBOCYTOPENIA [None]
  - THROMBOCYTOPENIC PURPURA [None]
